FAERS Safety Report 13772538 (Version 3)
Quarter: 2017Q4

REPORT INFORMATION
  Report Type: Spontaneous
  Country: US (occurrence: US)
  Receive Date: 20170720
  Receipt Date: 20171017
  Transmission Date: 20180320
  Serious: Yes (Life-Threatening, Hospitalization, Other)
  Sender: FDA-Public Use
  Company Number: US-GLAXOSMITHKLINE-US2017GSK111975

PATIENT
  Age: 50 Year
  Sex: Female
  Weight: 100.68 kg

DRUGS (4)
  1. BENLYSTA [Suspect]
     Active Substance: BELIMUMAB
     Dosage: 1040 MG, UNK
     Route: 042
     Dates: start: 20170711
  2. METOPROLOL ER [Concomitant]
     Active Substance: METOPROLOL SUCCINATE
  3. BENLYSTA [Suspect]
     Active Substance: BELIMUMAB
     Indication: SYSTEMIC LUPUS ERYTHEMATOSUS
     Dosage: 520 MG, UNK
     Route: 042
     Dates: start: 20170711, end: 20170711
  4. BENLYSTA [Suspect]
     Active Substance: BELIMUMAB
     Dosage: 520 MG, UNK
     Route: 042
     Dates: start: 20170711, end: 20170711

REACTIONS (11)
  - Cardiac arrest [Recovered/Resolved]
  - Disorientation [Recovered/Resolved]
  - Rash [Recovered/Resolved]
  - Pruritus [Unknown]
  - Systemic lupus erythematosus [Unknown]
  - Depressed level of consciousness [Recovered/Resolved]
  - Dermatitis contact [Recovered/Resolved]
  - Anaphylactic reaction [Unknown]
  - Nausea [Recovered/Resolved]
  - Dyspnoea [Unknown]
  - Rash pruritic [Recovered/Resolved]

NARRATIVE: CASE EVENT DATE: 20170711
